FAERS Safety Report 6004101-6 (Version None)
Quarter: 2008Q4

REPORT INFORMATION
  Report Type: 
  Country: None (occurrence: None)
  Receive Date: 20081212
  Receipt Date: 20081204
  Transmission Date: 20090506
  Serious: Yes (Other)
  Sender: FDA-Public Use
  Company Number: 2008SP024778

PATIENT
  Age: 80 Year
  Sex: Female

DRUGS (4)
  1. DIAFUSOR (GLYCERYL TRINITRATE) (GLYCERYL TRINITRATE) [Suspect]
     Indication: DRUG USE FOR UNKNOWN INDICATION
     Dosage: CUT
     Route: 003
  2. ISOSORBIDE DINITRATE [Suspect]
     Indication: DRUG USE FOR UNKNOWN INDICATION
  3. MOTILIUM [Concomitant]
  4. PULMICORT-100 [Concomitant]

REACTIONS (2)
  - ASTHENIA [None]
  - HEPATITIS [None]
